FAERS Safety Report 12631487 (Version 2)
Quarter: 2016Q3

REPORT INFORMATION
  Report Type: Spontaneous
  Country: US (occurrence: US)
  Receive Date: 20160808
  Receipt Date: 20160808
  Transmission Date: 20161109
  Serious: No
  Sender: FDA-Public Use
  Company Number: US-BEH-2015054187

PATIENT
  Sex: Female
  Weight: 81 kg

DRUGS (23)
  1. ACETAMINOPHEN. [Concomitant]
     Active Substance: ACETAMINOPHEN
  2. DIPHENHYDRAMINE. [Concomitant]
     Active Substance: DIPHENHYDRAMINE
  3. AMOXICILLIN. [Concomitant]
     Active Substance: AMOXICILLIN
  4. SOMA [Concomitant]
     Active Substance: CARISOPRODOL
  5. NOVOLOG [Concomitant]
     Active Substance: INSULIN ASPART
  6. CEFDINIR. [Concomitant]
     Active Substance: CEFDINIR
  7. PAXIL [Concomitant]
     Active Substance: PAROXETINE HYDROCHLORIDE
  8. HYDROCHLORTHIAZIDE [Concomitant]
     Active Substance: HYDROCHLOROTHIAZIDE
  9. MS CONTIN [Concomitant]
     Active Substance: MORPHINE SULFATE
  10. HUMULIN NOS [Concomitant]
     Active Substance: INSULIN HUMAN
  11. DIOVAN [Concomitant]
     Active Substance: VALSARTAN
  12. BENTYL [Concomitant]
     Active Substance: DICYCLOMINE HYDROCHLORIDE
  13. METFORMIN [Concomitant]
     Active Substance: METFORMIN HYDROCHLORIDE
  14. DOXYCYCLINE. [Concomitant]
     Active Substance: DOXYCYCLINE
  15. CLONIDINE. [Concomitant]
     Active Substance: CLONIDINE
  16. ASPIRIN. [Concomitant]
     Active Substance: ASPIRIN
  17. EPIPEN [Concomitant]
     Active Substance: EPINEPHRINE
     Indication: ANAPHYLACTIC REACTION
  18. LIDODERM [Concomitant]
     Active Substance: LIDOCAINE
  19. LIDOCAINE/ PRILOCAINE [Concomitant]
  20. SENOKOT [Concomitant]
     Active Substance: SENNOSIDES
  21. AMLODIPINE [Concomitant]
     Active Substance: AMLODIPINE BESYLATE
  22. PROMETHAZINE [Concomitant]
     Active Substance: PROMETHAZINE\PROMETHAZINE HYDROCHLORIDE
  23. HIZENTRA [Suspect]
     Active Substance: HUMAN IMMUNOGLOBULIN G
     Indication: IMMUNODEFICIENCY COMMON VARIABLE
     Route: 058

REACTIONS (1)
  - Infusion site erythema [Unknown]
